FAERS Safety Report 10008910 (Version 1)
Quarter: 2014Q1

REPORT INFORMATION
  Report Type: Spontaneous
  Country: US (occurrence: US)
  Receive Date: 20140313
  Receipt Date: 20140313
  Transmission Date: 20141002
  Serious: No
  Sender: FDA-Public Use
  Company Number: US-INCYTE CORPORATION-2012IN000831

PATIENT
  Sex: Female

DRUGS (5)
  1. JAKAFI [Suspect]
     Indication: MYELOFIBROSIS
     Dosage: 10 MG, BID
     Route: 048
     Dates: start: 201201
  2. SYNTHROID [Concomitant]
  3. MIRALAX [Concomitant]
  4. AMBIEN [Concomitant]
  5. PROCRIT [Concomitant]

REACTIONS (1)
  - Fatigue [Unknown]
